FAERS Safety Report 8286450-4 (Version None)
Quarter: 2012Q2

REPORT INFORMATION
  Report Type: 
  Country: None (occurrence: None)
  Receive Date: 20120416
  Receipt Date: 20120411
  Transmission Date: 20120825
  Serious: Yes (Hospitalization, Other)
  Sender: FDA-Public Use
  Company Number: FR-PFIZER INC-2012089846

PATIENT
  Age: 24 Year
  Sex: Female

DRUGS (3)
  1. ACETAMINOPHEN [Suspect]
     Dosage: 3-4DF PER DAY
     Route: 048
     Dates: start: 20120101
  2. ACETAMINOPHEN [Suspect]
     Dosage: 3 TO 4 DF PER DAY
     Dates: start: 20120115
  3. IBUPROFEN (ADVIL) [Suspect]
     Dosage: 3-4 DF PER DAY
     Route: 048
     Dates: start: 20111215, end: 20120115

REACTIONS (5)
  - PNEUMONIA [None]
  - AGRANULOCYTOSIS [None]
  - CHEST PAIN [None]
  - HYPERSENSITIVITY [None]
  - EOSINOPHILIA [None]
